FAERS Safety Report 8160982-1 (Version None)
Quarter: 2012Q1

REPORT INFORMATION
  Report Type: 
  Country: None (occurrence: None)
  Receive Date: 20120223
  Receipt Date: 20120219
  Transmission Date: 20120608
  Serious: No
  Sender: FDA-Public Use
  Company Number: US-BAYER-2012-017291

PATIENT
  Age: 82 Year
  Sex: Female
  Weight: 64 kg

DRUGS (8)
  1. ALEVE (CAPLET) [Suspect]
     Indication: HEADACHE
     Route: 048
  2. SIMVASTATIN [Concomitant]
  3. ACETYLSALICYLIC ACID SRT [Concomitant]
  4. DILTIAZEM HCL [Concomitant]
  5. FUROSEMIDE [Concomitant]
  6. ALLOPURINOL [Concomitant]
  7. PRAZOSIN HYDROCHLORIDE [Concomitant]
  8. LISINOPRIL [Concomitant]

REACTIONS (1)
  - HEADACHE [None]
